FAERS Safety Report 9874791 (Version 1)
Quarter: 2014Q1

REPORT INFORMATION
  Report Type: Spontaneous
  Country: FR (occurrence: FR)
  Receive Date: 20140206
  Receipt Date: 20140206
  Transmission Date: 20141002
  Serious: Yes (Hospitalization)
  Sender: FDA-Public Use
  Company Number: PHHY2014FR011942

PATIENT
  Age: 77 Year
  Sex: Female

DRUGS (5)
  1. AMIODARONE SANDOZ [Suspect]
     Indication: ATRIAL FIBRILLATION
     Dosage: 200 MG, UNK
     Route: 048
     Dates: start: 20080307, end: 20080615
  2. ATENOLOL SANDOZ [Suspect]
     Indication: ATRIAL FIBRILLATION
     Dosage: 100 MG, QD
     Route: 048
     Dates: end: 20080615
  3. DIFFU K [Concomitant]
     Indication: HYPOKALAEMIA
     Dosage: 1 DF, QD
     Route: 048
     Dates: end: 20080614
  4. LAROXYL [Suspect]
     Dosage: 10 GTT, TID
     Route: 048
  5. COVERSYL [Suspect]
     Indication: HYPERTENSION
     Dosage: 1 DF, QD
     Route: 048

REACTIONS (3)
  - Malaise [Recovered/Resolved]
  - Bradyarrhythmia [Recovered/Resolved]
  - Electrocardiogram QT prolonged [Recovered/Resolved]
